FAERS Safety Report 17151356 (Version 1)
Quarter: 2019Q4

REPORT INFORMATION
  Report Type: Spontaneous
  Country: US (occurrence: US)
  Receive Date: 20191212
  Receipt Date: 20191212
  Transmission Date: 20200122
  Serious: Yes (Hospitalization)
  Sender: FDA-Public Use
  Company Number: None

PATIENT
  Age: 49 Year
  Sex: Female

DRUGS (5)
  1. HUMIRA [Suspect]
     Active Substance: ADALIMUMAB
     Indication: RHEUMATOID ARTHRITIS
     Dosage: ?          OTHER FREQUENCY:Q TWO WEEKS;?
     Route: 058
     Dates: start: 20180727
  2. CLINDAMYCIN. [Concomitant]
     Active Substance: CLINDAMYCIN
  3. MAGNESIUM [Concomitant]
     Active Substance: MAGNESIUM
  4. METHOTREXATE. [Concomitant]
     Active Substance: METHOTREXATE
  5. FOLIC ACID. [Concomitant]
     Active Substance: FOLIC ACID

REACTIONS (3)
  - Infection [None]
  - Weight increased [None]
  - Fatigue [None]
